FAERS Safety Report 6305233-5 (Version None)
Quarter: 2009Q3

REPORT INFORMATION
  Report Type: 
  Country: None (occurrence: None)
  Receive Date: 20090811
  Receipt Date: 20090729
  Transmission Date: 20100115
  Serious: Yes (Other)
  Sender: FDA-Public Use
  Company Number: PHHY2009ES31280

PATIENT
  Age: 69 Year
  Sex: Male

DRUGS (1)
  1. DAFIRO [Suspect]
     Indication: HYPERTENSION
     Dosage: 1 FIXED DOSE PER DAY
     Dates: start: 20090520

REACTIONS (1)
  - URINARY RETENTION [None]
